FAERS Safety Report 24396887 (Version 1)
Quarter: 2024Q4

REPORT INFORMATION
  Report Type: Spontaneous
  Country: CA (occurrence: CA)
  Receive Date: 20241004
  Receipt Date: 20241004
  Transmission Date: 20250115
  Serious: Yes (Other)
  Sender: BRISTOL MYERS SQUIBB
  Company Number: CA-BRISTOL-MYERS SQUIBB COMPANY-2024-154779

PATIENT

DRUGS (1)
  1. REBLOZYL [Suspect]
     Active Substance: LUSPATERCEPT-AAMT
     Indication: Myelodysplastic syndrome
     Dosage: DOSE AND FREQUENCY: UNAVAILABLE

REACTIONS (3)
  - COVID-19 [Not Recovered/Not Resolved]
  - Respiratory failure [Not Recovered/Not Resolved]
  - Arteriovenous fistula [Unknown]
